FAERS Safety Report 25691542 (Version 1)
Quarter: 2025Q3

REPORT INFORMATION
  Report Type: Spontaneous
  Country: US (occurrence: US)
  Receive Date: 20250818
  Receipt Date: 20250818
  Transmission Date: 20251021
  Serious: Yes (Death, Other)
  Sender: AMGEN
  Company Number: US-AMGEN-USASP2025159885

PATIENT

DRUGS (2)
  1. PREDNISONE [Suspect]
     Active Substance: PREDNISONE
     Indication: Immunosuppression
     Route: 065
  2. MYCOPHENOLATE MOFETIL [Concomitant]
     Active Substance: MYCOPHENOLATE MOFETIL
     Route: 065

REACTIONS (7)
  - Death [Fatal]
  - Liver transplant rejection [Unknown]
  - Opportunistic infection [Unknown]
  - Hepatitis C RNA [Unknown]
  - Dermatophytosis [Unknown]
  - Candida infection [Unknown]
  - Viral infection [Unknown]
